FAERS Safety Report 23591527 (Version 1)
Quarter: 2024Q1

REPORT INFORMATION
  Report Type: Spontaneous
  Country: US (occurrence: US)
  Receive Date: 20240304
  Receipt Date: 20240304
  Transmission Date: 20240410
  Serious: No
  Sender: FDA-Public Use
  Company Number: US-BAYER-2024A025287

PATIENT
  Age: 53 Year
  Sex: Female

DRUGS (1)
  1. MIRENA [Suspect]
     Active Substance: LEVONORGESTREL
     Indication: Menopause
     Dosage: 20?G/DAY
     Route: 015
     Dates: start: 202312

REACTIONS (4)
  - Device issue [None]
  - Complication of device insertion [None]
  - Off label use [None]
  - Device use issue [None]

NARRATIVE: CASE EVENT DATE: 20231201
